FAERS Safety Report 9744383 (Version 1)
Quarter: 2013Q4

REPORT INFORMATION
  Report Type: Spontaneous
  Country: GB (occurrence: GB)
  Receive Date: 20131210
  Receipt Date: 20131210
  Transmission Date: 20140711
  Serious: Yes (Disabling)
  Sender: FDA-Public Use
  Company Number: GB-ASTRAZENECA-2013SE88039

PATIENT
  Age: 65 Year
  Sex: Male

DRUGS (5)
  1. BRILIQUE [Suspect]
     Route: 048
  2. ASPIRIN [Concomitant]
     Route: 048
  3. ATORVASTATIN [Concomitant]
     Route: 048
  4. BISOPROLOL [Concomitant]
     Route: 048
  5. CANDESARTAN [Concomitant]
     Route: 048

REACTIONS (2)
  - Deafness [Not Recovered/Not Resolved]
  - Condition aggravated [Not Recovered/Not Resolved]
